FAERS Safety Report 9600645 (Version 1)
Quarter: 2013Q4

REPORT INFORMATION
  Report Type: Spontaneous
  Country: US (occurrence: US)
  Receive Date: 20131004
  Receipt Date: 20131004
  Transmission Date: 20140711
  Serious: No
  Sender: FDA-Public Use
  Company Number: US-AMGEN-USASP2013035857

PATIENT
  Age: 44 Year
  Sex: Female
  Weight: 52.15 kg

DRUGS (5)
  1. ENBREL [Suspect]
     Indication: PSORIASIS
     Dosage: UNK
     Route: 058
     Dates: start: 200608, end: 200708
  2. AMBIEN [Concomitant]
     Dosage: UNK
  3. ANAGRELIDE [Concomitant]
     Dosage: UNK
  4. MULTIVITAMINS, PLAIN [Concomitant]
     Dosage: UNK
  5. STELARA [Concomitant]
     Dosage: UNK

REACTIONS (1)
  - Therapeutic response decreased [Not Recovered/Not Resolved]
